FAERS Safety Report 13051105 (Version 3)
Quarter: 2017Q1

REPORT INFORMATION
  Report Type: Spontaneous
  Country: US (occurrence: US)
  Receive Date: 20161221
  Receipt Date: 20170210
  Transmission Date: 20170428
  Serious: No
  Sender: FDA-Public Use
  Company Number: US-PFIZER INC-2016591303

PATIENT

DRUGS (2)
  1. VECURONIUM BROMIDE. [Suspect]
     Active Substance: VECURONIUM BROMIDE
     Dosage: UNK
  2. VECURONIUM BROMIDE. [Suspect]
     Active Substance: VECURONIUM BROMIDE
     Dosage: ALMOST 60MG

REACTIONS (2)
  - Drug effect incomplete [Unknown]
  - Incorrect dose administered [Unknown]
